FAERS Safety Report 8823032 (Version 5)
Quarter: 2013Q1

REPORT INFORMATION
  Report Type: Report from Study
  Country: US (occurrence: US)
  Receive Date: 20121003
  Receipt Date: 20130125
  Transmission Date: 20140127
  Serious: Yes (Hospitalization, Other)
  Sender: FDA-Public Use
  Company Number: PHHO2012US013817

PATIENT
  Age: 48 Year
  Sex: Female
  Weight: 88.16 kg

DRUGS (12)
  1. ACZ885 [Suspect]
     Indication: CARDIOVASCULAR EVENT PROPHYLAXIS
     Dosage: 50 MG, BID
     Dates: start: 20111116
  2. INSULIN [Concomitant]
     Indication: DIABETES MELLITUS
     Dosage: 35 U, UNK
     Dates: start: 1998
  3. SIMVASTATIN [Concomitant]
     Indication: HYPERLIPIDAEMIA
     Dosage: 40 NG, QD
     Dates: start: 2008
  4. METOPROLOL [Concomitant]
     Indication: HYPERTENSION
     Dosage: 25 MG, QD
     Dates: start: 2008
  5. HYDROCODONE [Concomitant]
     Indication: FIBROMYALGIA
     Dosage: 5/325NG PRN
     Dates: start: 2009
  6. GABAPENTIN [Concomitant]
     Indication: NEUROPATHY PERIPHERAL
     Dosage: 300 NG, TID
     Dates: start: 2009, end: 20120901
  7. ASA [Concomitant]
     Indication: ANTICOAGULANT THERAPY
     Dosage: 325 MG, QD
     Dates: start: 2008
  8. EFFIENT [Concomitant]
     Indication: ANTICOAGULANT THERAPY
     Dosage: 10 MG, QD
     Dates: start: 20110811
  9. TRICOR [Concomitant]
     Indication: HYPERLIPIDAEMIA
     Dosage: 140 MG, QD
     Dates: start: 20110914
  10. RANEXA [Concomitant]
     Indication: ANGINA PECTORIS
     Dosage: 500 MG, BID
     Dates: start: 20120213
  11. BENAZEPRIL [Concomitant]
     Indication: HYPERTENSION
     Dosage: 5 MG, QD
     Dates: start: 20120402
  12. TYLENOL [Concomitant]
     Indication: FIBROMYALGIA
     Dosage: 325 MG, PRN
     Dates: start: 2009

REACTIONS (2)
  - Systemic inflammatory response syndrome [Recovered/Resolved]
  - Diverticulitis [Recovering/Resolving]
